FAERS Safety Report 19249959 (Version 2)
Quarter: 2021Q3

REPORT INFORMATION
  Report Type: Other
  Country: TW (occurrence: TW)
  Receive Date: 20210513
  Receipt Date: 20210920
  Transmission Date: 20211014
  Serious: Yes (Hospitalization, Other)
  Sender: FDA-Public Use
  Company Number: TW-ROCHE-2826721

PATIENT
  Age: 60 Year
  Sex: Female
  Weight: 67.5 kg

DRUGS (17)
  1. OTRIL [Concomitant]
  2. PLAQUENIL [Concomitant]
     Active Substance: HYDROXYCHLOROQUINE SULFATE
  3. HERCEPTIN [Suspect]
     Active Substance: TRASTUZUMAB
     Indication: BREAST CANCER
     Route: 042
     Dates: start: 20200807, end: 20201202
  4. CEFA (TAIWAN) [Concomitant]
  5. DOMPERIDONE [Concomitant]
     Active Substance: DOMPERIDONE
  6. RADI?K [Concomitant]
  7. DEPYRETIN [Concomitant]
     Active Substance: ACETAMINOPHEN
  8. SALICRET [Concomitant]
  9. DYNASTAT [Concomitant]
     Active Substance: PARECOXIB SODIUM
  10. DEXAMETHASONE. [Concomitant]
     Active Substance: DEXAMETHASONE
  11. ANXIEDIN [Concomitant]
  12. NEOMYCIN. [Concomitant]
     Active Substance: NEOMYCIN
  13. PROPRANOLOL [Concomitant]
     Active Substance: PROPRANOLOL HYDROCHLORIDE
  14. PHYXOL [Concomitant]
     Active Substance: PACLITAXEL
  15. HERCEPTIN [Suspect]
     Active Substance: TRASTUZUMAB
     Indication: BREAST CANCER
     Dosage: ON 03/DEC/2020,  THE PATIENT RECEIVED THE MOST RECENT DOSE OF SUBCUTANEOUS TRASTUZUMAB PRIOR THE EVE
     Route: 058
     Dates: end: 20201202
  16. XANAX [Concomitant]
     Active Substance: ALPRAZOLAM
  17. TIMEPIDIUM BROMIDE [Concomitant]
     Active Substance: TIMEPIDIUM BROMIDE

REACTIONS (4)
  - Cardiac failure [Not Recovered/Not Resolved]
  - Abdominal pain [Unknown]
  - Malaise [Unknown]
  - Tachycardia [Unknown]

NARRATIVE: CASE EVENT DATE: 20201203
